FAERS Safety Report 13639124 (Version 1)
Quarter: 2017Q2

REPORT INFORMATION
  Report Type: Spontaneous
  Country: US (occurrence: US)
  Receive Date: 20170609
  Receipt Date: 20170609
  Transmission Date: 20170830
  Serious: No
  Sender: FDA-Public Use
  Company Number: US-ROCHE-1394866

PATIENT
  Sex: Male

DRUGS (3)
  1. PROZAC [Concomitant]
     Active Substance: FLUOXETINE HYDROCHLORIDE
  2. PAXIL [Concomitant]
     Active Substance: PAROXETINE HYDROCHLORIDE
  3. KLONOPIN [Suspect]
     Active Substance: CLONAZEPAM
     Indication: AKATHISIA
     Route: 065
     Dates: end: 2002

REACTIONS (8)
  - Irritable bowel syndrome [Unknown]
  - Tendonitis [Unknown]
  - Drug withdrawal syndrome [Unknown]
  - Cognitive disorder [Unknown]
  - Disturbance in attention [Unknown]
  - Depersonalisation/derealisation disorder [Unknown]
  - Derealisation [Unknown]
  - Insomnia [Unknown]

NARRATIVE: CASE EVENT DATE: 2002
